FAERS Safety Report 16741818 (Version 4)
Quarter: 2020Q1

REPORT INFORMATION
  Report Type: Report from Study
  Country: BR (occurrence: BR)
  Receive Date: 20190826
  Receipt Date: 20200117
  Transmission Date: 20200409
  Serious: Yes (Disabling)
  Sender: FDA-Public Use
  Company Number: BR-ROCHE-2380075

PATIENT
  Age: 65 Year
  Sex: Female
  Weight: 51 kg

DRUGS (47)
  1. DOXORUBICIN [Suspect]
     Active Substance: DOXORUBICIN
     Indication: HER-2 POSITIVE BREAST CANCER
     Dosage: DATE OF MOST RECENT DOSE (88.2MG) PRIOR TO EVENT ONSET: 03/JUL/2019.
     Route: 042
     Dates: start: 20190521
  2. RANITIDINE. [Concomitant]
     Active Substance: RANITIDINE
     Dosage: PRE INFUSION
     Route: 065
     Dates: start: 20190718, end: 20190718
  3. DEXAMETHASONE. [Concomitant]
     Active Substance: DEXAMETHASONE
     Route: 042
     Dates: start: 20190802, end: 20190802
  4. LACTULOSE. [Concomitant]
     Active Substance: LACTULOSE
     Indication: CONSTIPATION PROPHYLAXIS
     Route: 065
     Dates: start: 20190811
  5. METHYLPREDNISOLONE. [Concomitant]
     Active Substance: METHYLPREDNISOLONE
     Route: 042
     Dates: start: 20190811, end: 20190811
  6. DEXAMETHASONE. [Concomitant]
     Active Substance: DEXAMETHASONE
     Route: 042
     Dates: start: 20190718, end: 20190718
  7. DIPHENHYDRAMINE. [Concomitant]
     Active Substance: DIPHENHYDRAMINE
     Route: 065
     Dates: start: 20190725, end: 20190725
  8. BISACODYL. [Concomitant]
     Active Substance: BISACODYL
     Indication: CONSTIPATION PROPHYLAXIS
     Route: 065
     Dates: start: 20190811, end: 20190811
  9. FUROSEMIDE. [Concomitant]
     Active Substance: FUROSEMIDE
     Indication: MYOCARDITIS
     Route: 065
     Dates: start: 20190812, end: 20190815
  10. ENALAPRIL [Concomitant]
     Active Substance: ENALAPRIL
     Indication: MYOCARDITIS
     Route: 065
     Dates: start: 20190812
  11. AMLODIPINE [Concomitant]
     Active Substance: AMLODIPINE BESYLATE
     Indication: HYPERTENSION
  12. FENOTEROL;IPRATROPIUM [Concomitant]
     Active Substance: FENOTEROL\IPRATROPIUM
     Indication: DYSPNOEA
     Route: 065
     Dates: start: 20190809, end: 20190814
  13. PACLITAXEL. [Suspect]
     Active Substance: PACLITAXEL
     Indication: HER-2 POSITIVE BREAST CANCER
     Dosage: DATE OF MOST RECENT DOSE (114.4 MG) PRIOR TO EVENT ONSET: 18/JUL/2019
     Route: 042
     Dates: start: 20190718
  14. DOMPERIDONE [Concomitant]
     Active Substance: DOMPERIDONE
     Indication: ABDOMINAL PAIN
     Route: 065
     Dates: start: 20190625
  15. FILGRASTIM [Concomitant]
     Active Substance: FILGRASTIM
     Indication: NEUTROPENIA
     Route: 065
     Dates: start: 20190704, end: 20190710
  16. DIPHENHYDRAMINE. [Concomitant]
     Active Substance: DIPHENHYDRAMINE
     Route: 065
     Dates: start: 20190809, end: 20190809
  17. FUROSEMIDE. [Concomitant]
     Active Substance: FUROSEMIDE
     Indication: POLYURIA
  18. METOCLOPRAMIDE. [Concomitant]
     Active Substance: METOCLOPRAMIDE
     Route: 065
     Dates: start: 20190810, end: 20190813
  19. OMEPRAZOL [OMEPRAZOLE] [Concomitant]
     Active Substance: OMEPRAZOLE
     Indication: GASTRITIS
     Route: 065
     Dates: start: 20190625
  20. RANITIDINE. [Concomitant]
     Active Substance: RANITIDINE
     Dosage: PRE INFUSION
     Route: 065
     Dates: start: 20190725, end: 20190725
  21. DIPHENHYDRAMINE. [Concomitant]
     Active Substance: DIPHENHYDRAMINE
     Route: 065
     Dates: start: 20190718, end: 20190718
  22. MORPHINE SULPHATE [Concomitant]
     Active Substance: MORPHINE SULFATE
     Route: 065
     Dates: start: 20190810, end: 20190812
  23. ATEZOLIZUMAB. [Suspect]
     Active Substance: ATEZOLIZUMAB
     Indication: HER-2 POSITIVE BREAST CANCER
     Dosage: DATE OF MOST RECENT DOSE PRIOR TO EVENT ONSET:16/JUL//2019
     Route: 042
     Dates: start: 20190521
  24. PERTUZUMAB. [Suspect]
     Active Substance: PERTUZUMAB
     Indication: HER-2 POSITIVE BREAST CANCER
     Dosage: INITIAL 840-MG IV LOADING DOSE AND 420 MG AS LOADING DOSE?DATE OF MOST RECENT DOSE (840 MG) PRIOR TO
     Route: 042
     Dates: start: 20190718
  25. RANITIDINE. [Concomitant]
     Active Substance: RANITIDINE
     Indication: GASTRITIS
     Route: 065
     Dates: start: 20190625
  26. RANITIDINE. [Concomitant]
     Active Substance: RANITIDINE
     Dosage: PRE INFUSION
     Route: 065
     Dates: start: 20190809, end: 20190809
  27. DEXAMETHASONE. [Concomitant]
     Active Substance: DEXAMETHASONE
     Route: 042
     Dates: start: 20190725, end: 20190725
  28. METHYLPREDNISOLONE. [Concomitant]
     Active Substance: METHYLPREDNISOLONE
     Route: 042
     Dates: start: 20190810, end: 20190810
  29. TRASTUZUMAB. [Suspect]
     Active Substance: TRASTUZUMAB
     Indication: HER-2 POSITIVE BREAST CANCER
     Dosage: 8 MG/KG INITIAL DOSE AND 4 MG/KG AS LOADING DOSES?DATE OF MOST RECENT DOSE (408 MG) PRIOR TO EVENT O
     Route: 042
     Dates: start: 20190718
  30. ONDANSETRON [Concomitant]
     Active Substance: ONDANSETRON
     Indication: VOMITING
     Route: 065
     Dates: start: 20190703, end: 20190703
  31. ONDANSETRON [Concomitant]
     Active Substance: ONDANSETRON
     Route: 065
     Dates: start: 20190812, end: 20190812
  32. FILGRASTIM [Concomitant]
     Active Substance: FILGRASTIM
     Route: 065
     Dates: start: 20190619, end: 20190625
  33. RED BLOOD CELLS, CONCENTRATED [Concomitant]
     Active Substance: HUMAN RED BLOOD CELL
     Indication: ANAEMIA
     Route: 065
     Dates: start: 20190805, end: 20190805
  34. METHYLPREDNISOLONE. [Concomitant]
     Active Substance: METHYLPREDNISOLONE
     Indication: MYOCARDITIS
     Route: 042
     Dates: start: 20190809, end: 20190814
  35. AMLODIPINE [Concomitant]
     Active Substance: AMLODIPINE BESYLATE
     Indication: MYOCARDITIS
     Route: 065
     Dates: start: 20190814, end: 20190814
  36. DIPYRONE [Concomitant]
     Active Substance: DIPYRONE
     Route: 065
     Dates: start: 20190809, end: 20190814
  37. LOSARTAN. [Concomitant]
     Active Substance: LOSARTAN
     Route: 065
     Dates: start: 20190810, end: 20190815
  38. METHYLPREDNISOLONE. [Concomitant]
     Active Substance: METHYLPREDNISOLONE
     Indication: CARDIAC FAILURE
     Route: 042
     Dates: start: 20190809, end: 20190809
  39. RANITIDINE. [Concomitant]
     Active Substance: RANITIDINE
     Dosage: PRE INFUSION
     Route: 065
     Dates: start: 20190802, end: 20190802
  40. DIPHENHYDRAMINE. [Concomitant]
     Active Substance: DIPHENHYDRAMINE
     Route: 065
     Dates: start: 20190802, end: 20190802
  41. CEFUROXIME. [Concomitant]
     Active Substance: CEFUROXIME
     Route: 065
     Dates: start: 20190809, end: 20190815
  42. PARACETAMOL [Concomitant]
     Active Substance: ACETAMINOPHEN
     Route: 065
     Dates: start: 20190810, end: 20190810
  43. CYCLOPHOSPHAMIDE. [Suspect]
     Active Substance: CYCLOPHOSPHAMIDE
     Indication: HER-2 POSITIVE BREAST CANCER
     Dosage: DATE OF MOST RECENT DOSE (882MG) PRIOR TO EVENT ONSET: 03/JUL/2019.
     Route: 042
     Dates: start: 20190521
  44. DEXAMETHASONE. [Concomitant]
     Active Substance: DEXAMETHASONE
     Route: 042
     Dates: start: 20190809, end: 20190809
  45. ENOXAPARIN [Concomitant]
     Active Substance: ENOXAPARIN
     Route: 065
     Dates: start: 20190811, end: 20190815
  46. NISTATIN [Concomitant]
     Active Substance: NYSTATIN
     Route: 065
     Dates: start: 20190813, end: 20190815
  47. PARACETAMOL+CODEIN [Concomitant]
     Active Substance: ACETAMINOPHEN\CODEINE PHOSPHATE
     Route: 065
     Dates: start: 20190814, end: 20190814

REACTIONS (1)
  - Meibomianitis [Not Recovered/Not Resolved]

NARRATIVE: CASE EVENT DATE: 20190720
